FAERS Safety Report 24109154 (Version 1)
Quarter: 2024Q3

REPORT INFORMATION
  Report Type: Spontaneous
  Country: US (occurrence: None)
  Receive Date: 20240717
  Receipt Date: 20240717
  Transmission Date: 20241016
  Serious: No
  Sender: Public
  Company Number: None

PATIENT
  Age: 71 Year
  Sex: Female
  Weight: 73.75 kg

DRUGS (3)
  1. FLUOROURACIL [Suspect]
     Active Substance: FLUOROURACIL
  2. LEUCOVORIN CALCIUM [Concomitant]
  3. ELOXATIN [Concomitant]
     Active Substance: OXALIPLATIN

REACTIONS (7)
  - Diarrhoea [None]
  - Fatigue [None]
  - Dehydration [None]
  - Hypomagnesaemia [None]
  - White blood cell count decreased [None]
  - Neutrophil count decreased [None]
  - Therapy interrupted [None]

NARRATIVE: CASE EVENT DATE: 20240617
